FAERS Safety Report 8185429-0 (Version None)
Quarter: 2012Q1

REPORT INFORMATION
  Report Type: 
  Country: None (occurrence: None)
  Receive Date: 20120305
  Receipt Date: 20120301
  Transmission Date: 20120608
  Serious: Yes (Death, Other)
  Sender: FDA-Public Use
  Company Number: PHHY2012NL018015

PATIENT
  Age: 48 Year
  Sex: Female

DRUGS (4)
  1. VORICONAZOLE [Suspect]
     Indication: ASPERGILLOMA
  2. ITRACONAZOLE [Suspect]
     Dates: start: 20081001
  3. ITRACONAZOLE [Suspect]
     Indication: ASPERGILLOMA
     Dates: start: 20000401, end: 20071101
  4. VORICONAZOLE [Suspect]
     Indication: ASPERGILLOMA

REACTIONS (3)
  - UROSEPSIS [None]
  - ASPERGILLOSIS [None]
  - DRUG RESISTANCE [None]
